FAERS Safety Report 4464996-4 (Version None)
Quarter: 2004Q4

REPORT INFORMATION
  Report Type: 
  Country: None (occurrence: None)
  Receive Date: 20041004
  Receipt Date: 20040527
  Transmission Date: 20050328
  Serious: Yes (Life-Threatening, Hospitalization, Other)
  Sender: FDA-Public Use
  Company Number: 369750

PATIENT
  Age: 72 Year
  Sex: Male
  Weight: 107.3 kg

DRUGS (1)
  1. COREG [Suspect]
     Dosage: 25MG SINGLE DOSE
     Route: 048
     Dates: start: 20010101

REACTIONS (3)
  - BRADYCARDIA [None]
  - HYPOTENSION [None]
  - OVERDOSE [None]
